FAERS Safety Report 9628904 (Version 2)
Quarter: 2013Q4

REPORT INFORMATION
  Report Type: Spontaneous
  Country: PT (occurrence: PT)
  Receive Date: 20131017
  Receipt Date: 20131212
  Transmission Date: 20140711
  Serious: Yes (Other)
  Sender: FDA-Public Use
  Company Number: PT-JNJFOC-20131001389

PATIENT
  Age: 49 Year
  Sex: Male

DRUGS (7)
  1. SIMPONI [Suspect]
     Indication: RHEUMATOID ARTHRITIS
     Route: 058
     Dates: start: 20130606
  2. ETANERCEPT [Suspect]
     Indication: RHEUMATOID ARTHRITIS
     Route: 065
     Dates: start: 200210, end: 2013
  3. CRESTOR [Concomitant]
     Route: 065
  4. ZYLORIC [Concomitant]
     Route: 065
  5. MEDROL [Concomitant]
     Route: 065
  6. NEBILET [Concomitant]
     Route: 065
  7. OMEPRAZOLE [Concomitant]
     Route: 065

REACTIONS (2)
  - Erysipelas [Recovering/Resolving]
  - Dermatophytosis [Unknown]
